FAERS Safety Report 13666718 (Version 1)
Quarter: 2017Q2

REPORT INFORMATION
  Report Type: Spontaneous
  Country: US (occurrence: US)
  Receive Date: 20170619
  Receipt Date: 20170619
  Transmission Date: 20170830
  Serious: No
  Sender: FDA-Public Use
  Company Number: US-ROCHE-1238325

PATIENT
  Sex: Male
  Weight: 69.46 kg

DRUGS (11)
  1. XELODA [Suspect]
     Active Substance: CAPECITABINE
     Route: 048
     Dates: start: 201303
  2. AVASTIN [Suspect]
     Active Substance: BEVACIZUMAB
     Indication: RECTAL CANCER
     Route: 050
     Dates: start: 20130314
  3. LISINOPRIL. [Concomitant]
     Active Substance: LISINOPRIL
  4. FLUOROURACIL. [Concomitant]
     Active Substance: FLUOROURACIL
     Indication: RECTAL CANCER
     Route: 050
     Dates: start: 20120330, end: 20130124
  5. XELODA [Suspect]
     Active Substance: CAPECITABINE
     Indication: RECTAL CANCER
     Dosage: 3 TABS (7 DAYS ON, 7 DAYS OFF)
     Route: 048
     Dates: start: 20130313
  6. COUMADIN [Concomitant]
     Active Substance: WARFARIN SODIUM
  7. CORTEF [Concomitant]
     Active Substance: HYDROCORTISONE
  8. FOLINIC ACID [Concomitant]
     Active Substance: LEUCOVORIN
     Indication: RECTAL CANCER
     Route: 050
     Dates: start: 20120330, end: 20130124
  9. CARDURA [Concomitant]
     Active Substance: DOXAZOSIN MESYLATE
  10. OXALIPLATIN. [Concomitant]
     Active Substance: OXALIPLATIN
     Route: 050
     Dates: start: 20120330, end: 20130124
  11. VICODIN [Concomitant]
     Active Substance: ACETAMINOPHEN\HYDROCODONE BITARTRATE

REACTIONS (2)
  - Neuropathy peripheral [Recovered/Resolved]
  - Hypoaesthesia [Unknown]
